FAERS Safety Report 25531741 (Version 1)
Quarter: 2025Q3

REPORT INFORMATION
  Report Type: Spontaneous
  Country: EU (occurrence: EU)
  Receive Date: 20250709
  Receipt Date: 20250709
  Transmission Date: 20251020
  Serious: Yes (Other)
  Sender: AMGEN
  Company Number: EU-AMGEN-ITASP2025132626

PATIENT
  Age: 71 Year
  Sex: Female

DRUGS (1)
  1. PROLIA [Suspect]
     Active Substance: DENOSUMAB
     Indication: Osteoporosis
     Route: 065
     Dates: start: 202501

REACTIONS (3)
  - Retinopathy haemorrhagic [Unknown]
  - Macular oedema [Unknown]
  - Thyroid mass [Unknown]

NARRATIVE: CASE EVENT DATE: 20250501
